FAERS Safety Report 6891547-7 (Version None)
Quarter: 2010Q3

REPORT INFORMATION
  Report Type: 
  Country: None (occurrence: None)
  Receive Date: 20100731
  Receipt Date: 20070907
  Transmission Date: 20110219
  Serious: No
  Sender: FDA-Public Use
  Company Number: US-PFIZER INC-2007045288

PATIENT
  Sex: Male
  Weight: 118 kg

DRUGS (12)
  1. CAVERJECT [Suspect]
     Indication: ERECTILE DYSFUNCTION
     Route: 051
     Dates: start: 20070501
  2. GLYBURIDE [Concomitant]
  3. LIPITOR [Concomitant]
  4. AMITRIPTYLINE HYDROCHLORIDE [Concomitant]
  5. CHOLESTEROL- AND TRIGLYCERIDE REDUCERS [Concomitant]
     Indication: BLOOD CHOLESTEROL
  6. ALL OTHER THERAPEUTIC PRODUCTS [Concomitant]
  7. LISINOPRIL [Concomitant]
  8. PENTOXIFYLLINE [Concomitant]
  9. CLOPIDOGREL [Concomitant]
  10. EFFEXOR [Concomitant]
  11. TRAMADOL HYDROCHLORIDE [Concomitant]
  12. AMBIEN [Concomitant]

REACTIONS (2)
  - DRUG INEFFECTIVE [None]
  - WEIGHT DECREASED [None]
